FAERS Safety Report 23899613 (Version 1)
Quarter: 2024Q2

REPORT INFORMATION
  Report Type: Spontaneous
  Country: US (occurrence: None)
  Receive Date: 20240526
  Receipt Date: 20240526
  Transmission Date: 20240716
  Serious: No
  Sender: FDA-Public Use
  Company Number: US-ROCHE-3390459

PATIENT
  Age: 68 Year
  Sex: Female

DRUGS (10)
  1. ACTEMRA [Suspect]
     Active Substance: TOCILIZUMAB
     Indication: Giant cell arteritis
     Dosage: STRENGTH: 162MG/0.9ML
     Route: 058
     Dates: start: 20230712
  2. ACTEMRA [Suspect]
     Active Substance: TOCILIZUMAB
  3. ACTEMRA [Suspect]
     Active Substance: TOCILIZUMAB
     Indication: Polymyalgia rheumatica
  4. ACTEMRA [Suspect]
     Active Substance: TOCILIZUMAB
  5. PREDNISONE [Concomitant]
     Active Substance: PREDNISONE
     Dosage: STARTED AT 10 MG 3 TIMES A DAY AND HAS BEEN A A TAPERING DOSE TO?WHAT SHE IS CURRENTLY ON
     Route: 048
     Dates: start: 20230510
  6. ROSUVASTATIN [Concomitant]
     Active Substance: ROSUVASTATIN
     Indication: Blood cholesterol increased
     Route: 048
     Dates: start: 202211, end: 20230312
  7. METFORMIN [Concomitant]
     Active Substance: METFORMIN HYDROCHLORIDE
     Indication: Diabetes mellitus
     Route: 048
     Dates: start: 202211
  8. METHOTREXATE [Concomitant]
     Active Substance: METHOTREXATE
     Indication: Inflammation
     Dosage: TAKES 6 TABLETS (DOES NOT KNOW THE DOSE OF THE TABLETS); TAKES ON SATURDAYS
     Route: 048
     Dates: start: 20230624
  9. METHOTREXATE [Concomitant]
     Active Substance: METHOTREXATE
     Indication: Polymyalgia rheumatica
  10. FOLIC ACID [Concomitant]
     Active Substance: FOLIC ACID
     Route: 048
     Dates: start: 20230624

REACTIONS (4)
  - Product administration error [Unknown]
  - Exposure via skin contact [Unknown]
  - Product storage error [Unknown]
  - No adverse event [Unknown]

NARRATIVE: CASE EVENT DATE: 20230712
